FAERS Safety Report 6016320-3 (Version None)
Quarter: 2008Q4

REPORT INFORMATION
  Report Type: 
  Country: None (occurrence: None)
  Receive Date: 20081222
  Receipt Date: 20081211
  Transmission Date: 20090506
  Serious: Yes (Other)
  Sender: FDA-Public Use
  Company Number: US-BAXTER-2008BH013718

PATIENT
  Age: 65 Year
  Sex: Male

DRUGS (3)
  1. HEPARIN SODIUM 1,000 UNITS AND SODIUM CHLORIDE 0.9% [Suspect]
     Indication: CATHETERISATION CARDIAC
     Route: 042
     Dates: start: 20081209, end: 20081209
  2. DIGOXIN [Concomitant]
     Indication: DRUG USE FOR UNKNOWN INDICATION
     Route: 048
  3. ALBUTEROL [Concomitant]
     Indication: DRUG USE FOR UNKNOWN INDICATION
     Route: 065

REACTIONS (4)
  - CHILLS [None]
  - HYPOTENSION [None]
  - PYREXIA [None]
  - RENAL FAILURE ACUTE [None]
